FAERS Safety Report 12707974 (Version 4)
Quarter: 2016Q4

REPORT INFORMATION
  Report Type: Spontaneous
  Country: JP (occurrence: JP)
  Receive Date: 20160901
  Receipt Date: 20161027
  Transmission Date: 20170207
  Serious: Yes (Other)
  Sender: FDA-Public Use
  Company Number: JP-PFIZER INC-2016297107

PATIENT
  Age: 82 Year
  Sex: Female

DRUGS (3)
  1. VIVIANT [Suspect]
     Active Substance: BAZEDOXIFENE
     Dosage: UNK
     Route: 048
  2. LYRICA [Suspect]
     Active Substance: PREGABALIN
     Dosage: UNK
     Route: 048
  3. OPALMON [Suspect]
     Active Substance: LIMAPROST
     Dosage: UNK
     Route: 048

REACTIONS (2)
  - Compression fracture [Unknown]
  - Spinal deformity [Unknown]
